FAERS Safety Report 8474300-2 (Version None)
Quarter: 2012Q2

REPORT INFORMATION
  Report Type: 
  Country: None (occurrence: None)
  Receive Date: 20120628
  Receipt Date: 20120619
  Transmission Date: 20120825
  Serious: Yes (Hospitalization)
  Sender: FDA-Public Use
  Company Number: US-BAYER-2012-062353

PATIENT
  Age: 18 Year
  Sex: Female
  Weight: 112.2 kg

DRUGS (12)
  1. DOCUSATE SODIUM [Concomitant]
  2. CEPHALEXIN [Concomitant]
     Dosage: 500 MG, UNK
     Route: 048
     Dates: start: 20110325
  3. YAZ [Suspect]
  4. DROSPIRENONE AND ETHINYL ESTRADIOL [Suspect]
  5. PROMETHAZINE [Concomitant]
     Dosage: 25 MG, UNK
     Route: 048
     Dates: start: 20110325
  6. ACETAMINOPHEN [Concomitant]
     Dosage: 6450 MG, Q4HR PRN
  7. BISACODYL [Concomitant]
  8. FERROUS SULFATE TAB [Concomitant]
  9. ASCORBIC ACID [Concomitant]
  10. YASMIN [Suspect]
     Indication: AMENORRHOEA
  11. HYDROCODONE BITARTRATE + ACETAMINOPHEN [Concomitant]
     Dosage: UNK
     Route: 048
     Dates: start: 20110325
  12. XOPENEX [Concomitant]

REACTIONS (2)
  - PULMONARY INFARCTION [None]
  - PULMONARY EMBOLISM [None]
